FAERS Safety Report 5810815-0 (Version None)
Quarter: 2008Q3

REPORT INFORMATION
  Report Type: 
  Country: None (occurrence: None)
  Receive Date: 20080710
  Receipt Date: 20080626
  Transmission Date: 20090109
  Serious: Yes (Hospitalization, Other)
  Sender: FDA-Public Use
  Company Number: 2008US001684

PATIENT
  Age: 63 Year
  Sex: Male
  Weight: 95.7 kg

DRUGS (28)
  1. PROGRAF [Suspect]
     Indication: LUNG TRANSPLANT
     Dosage: 1 MG, BID, ORAL
     Route: 048
     Dates: start: 20050803
  2. AZATHIOPRINE [Suspect]
     Indication: LUNG TRANSPLANT
     Dosage: 150 MG, UID/QD, ORAL
     Route: 048
     Dates: start: 20050801
  3. ATENOLOL [Concomitant]
  4. BACTRIM DS [Concomitant]
  5. CALCIUM+VIT D (ASCORBIC ACID, COLECALCIFEROL) CAPSULE [Concomitant]
  6. COENZYME Q10 (UBIDECARENONE) TABLET [Concomitant]
  7. FLUNISOLIDE (FLUNISOLIDE) NASAL SPRAY [Concomitant]
  8. FOLIC ACID [Concomitant]
  9. GLUCOSAMINE + CHONDROITIN (GLUCOSAMINE, CHONDROITIN SULFATE) TABLET [Concomitant]
  10. IMITREX (SUMATRIPTAN SUCCINATE) TABLET [Concomitant]
  11. LORATADINE (LORATADINE) TABLET [Concomitant]
  12. OMEPRAZOLE (OMEPRAZOLE SODIUM) [Concomitant]
  13. ZOFRAN (ONDANSETRON HYDROCHLORIDE) TABLET [Concomitant]
  14. PREDNISONE [Concomitant]
  15. ACTONEL [Concomitant]
  16. SIMVASTATIN [Concomitant]
  17. FLOMAX (TAMSULOSIN HYDROCHLORIDE) TABLET [Concomitant]
  18. TRETINOIN [Concomitant]
  19. TYLENOL PM EXTRA STRENGTH TABLET [Concomitant]
  20. XALATAN (LATANOPROST) EYE DROP [Concomitant]
  21. AMOXICILLIN TABLET [Concomitant]
  22. DICLOXACILLIN (DICLOXACILLIN SODIUM MONOHYDRATE) CAPSULE [Concomitant]
  23. VICODIN [Concomitant]
  24. NOVOLIN N [Concomitant]
  25. MUPIROCIN (MUPIROCIN) OINTMENT [Concomitant]
  26. XEROFORM (BISMUTH TRIBROMOPHENATE) [Concomitant]
  27. INSULIN ASPART (INSULIN ASPART) [Concomitant]
  28. MULTIVITAMIN (VITAMINS NOS) TABLET [Concomitant]

REACTIONS (13)
  - BLOOD CHLORIDE INCREASED [None]
  - BLOOD CREATININE INCREASED [None]
  - BLOOD GLUCOSE INCREASED [None]
  - BLOOD UREA INCREASED [None]
  - DIABETES MELLITUS [None]
  - DRUG LEVEL BELOW THERAPEUTIC [None]
  - HAEMATOCRIT DECREASED [None]
  - HAEMOGLOBIN DECREASED [None]
  - NEOPLASM MALIGNANT [None]
  - PAIN [None]
  - SALIVARY GLAND CANCER [None]
  - SQUAMOUS CELL CARCINOMA [None]
  - WHITE BLOOD CELL COUNT INCREASED [None]
